FAERS Safety Report 24647488 (Version 1)
Quarter: 2024Q4

REPORT INFORMATION
  Report Type: Spontaneous
  Country: US (occurrence: US)
  Receive Date: 20241121
  Receipt Date: 20241121
  Transmission Date: 20250115
  Serious: Yes (Life-Threatening, Hospitalization, Other)
  Sender: SANDOZ
  Company Number: US-NOVPHSZ-PHHY2017US109906

PATIENT
  Age: 84 Year
  Sex: Male

DRUGS (7)
  1. PIPERACILLIN SODIUM\TAZOBACTAM SODIUM [Concomitant]
     Active Substance: PIPERACILLIN SODIUM\TAZOBACTAM SODIUM
     Indication: Neutropenia
     Route: 065
  2. PIPERACILLIN SODIUM\TAZOBACTAM SODIUM [Concomitant]
     Active Substance: PIPERACILLIN SODIUM\TAZOBACTAM SODIUM
     Indication: Pneumonia
  3. DOCETAXEL [Interacting]
     Active Substance: DOCETAXEL
     Indication: Prostate cancer
     Route: 065
  4. DOCETAXEL [Interacting]
     Active Substance: DOCETAXEL
     Indication: Metastases to bone
  5. DABIGATRAN [Interacting]
     Active Substance: DABIGATRAN
     Indication: Atrial fibrillation
     Route: 065
  6. ENZALUTAMIDE [Interacting]
     Active Substance: ENZALUTAMIDE
     Indication: Prostate cancer
     Route: 065
  7. ENZALUTAMIDE [Interacting]
     Active Substance: ENZALUTAMIDE
     Indication: Metastases to bone

REACTIONS (20)
  - Pericardial haemorrhage [Recovered/Resolved]
  - Venous injury [Recovered/Resolved]
  - Pericardial effusion [Recovered/Resolved]
  - Heart sounds [Recovered/Resolved]
  - Cardiac tamponade [Recovered/Resolved]
  - Drug interaction [Recovered/Resolved]
  - Blood pressure systolic inspiratory decreased [Recovered/Resolved]
  - Crepitations [Recovered/Resolved]
  - Wheezing [Recovered/Resolved]
  - Coagulation time prolonged [Unknown]
  - Febrile neutropenia [Unknown]
  - Acute kidney injury [Unknown]
  - Oliguria [Unknown]
  - Lethargy [Unknown]
  - Renal impairment [Unknown]
  - Hyperkalaemia [Unknown]
  - Condition aggravated [Unknown]
  - Haemodynamic instability [Unknown]
  - Cardiogenic shock [Unknown]
  - Multiple organ dysfunction syndrome [Recovered/Resolved]
